FAERS Safety Report 16411585 (Version 3)
Quarter: 2020Q1

REPORT INFORMATION
  Report Type: Report from Study
  Country: CA (occurrence: CA)
  Receive Date: 20190610
  Receipt Date: 20200228
  Transmission Date: 20200409
  Serious: Yes (Hospitalization, Other)
  Sender: FDA-Public Use
  Company Number: CA-JNJFOC-20190520881

PATIENT
  Age: 25 Year
  Sex: Male
  Weight: 57.7 kg

DRUGS (2)
  1. SIMPONI [Suspect]
     Active Substance: GOLIMUMAB
     Indication: CROHN^S DISEASE
     Dosage: STRENGTH = 100 MG
     Route: 058
     Dates: start: 20190221
  2. SIMPONI [Suspect]
     Active Substance: GOLIMUMAB
     Route: 058

REACTIONS (8)
  - Bone abscess [Not Recovered/Not Resolved]
  - Therapeutic product effect incomplete [Unknown]
  - Abscess [Not Recovered/Not Resolved]
  - Nasal congestion [Unknown]
  - Treatment noncompliance [Unknown]
  - Off label use [Unknown]
  - Enterocutaneous fistula [Recovering/Resolving]
  - Product use in unapproved indication [Unknown]

NARRATIVE: CASE EVENT DATE: 2019
